FAERS Safety Report 24918887 (Version 1)
Quarter: 2025Q1

REPORT INFORMATION
  Report Type: Spontaneous
  Country: US (occurrence: US)
  Receive Date: 20250204
  Receipt Date: 20250204
  Transmission Date: 20250409
  Serious: Yes (Other)
  Sender: NOVO NORDISK
  Company Number: US-NOVOPROD-1323610

PATIENT
  Age: 68 Year
  Sex: Female

DRUGS (4)
  1. NOVOLOG [Suspect]
     Active Substance: INSULIN ASPART
     Indication: Product used for unknown indication
     Route: 058
  2. NOVOLOG [Suspect]
     Active Substance: INSULIN ASPART
     Route: 058
  3. NOVOLOG [Suspect]
     Active Substance: INSULIN ASPART
     Route: 058
  4. NOVOLOG [Suspect]
     Active Substance: INSULIN ASPART
     Route: 058

REACTIONS (4)
  - Coronary arterial stent insertion [Unknown]
  - Brain operation [Unknown]
  - Balance disorder [Unknown]
  - General physical health deterioration [Unknown]
